FAERS Safety Report 5658129-6 (Version None)
Quarter: 2008Q1

REPORT INFORMATION
  Report Type: 
  Country: None (occurrence: None)
  Receive Date: 20080306
  Receipt Date: 20080229
  Transmission Date: 20080703
  Serious: Yes (Death)
  Sender: FDA-Public Use
  Company Number: CIO08003753

PATIENT
  Age: 19 Year
  Sex: Female

DRUGS (2)
  1. NYQUIL ADULT, VERSION/FLAVOR UNKNOWN(ETHANOL 10-25%, DEXTROMETHOPHAN H [Suspect]
     Dosage: ORAL
     Route: 048
  2. EXTRA STRENGTH TYLENOL [Suspect]
     Indication: TOOTHACHE
     Dosage: 9 TABLETS, ORAL
     Route: 048

REACTIONS (12)
  - CARDIAC ARREST [None]
  - DELIRIUM [None]
  - DISORIENTATION [None]
  - DRUG ADMINISTRATION ERROR [None]
  - DRUG TOXICITY [None]
  - HEPATOCELLULAR INJURY [None]
  - INCORRECT DOSE ADMINISTERED [None]
  - INCORRECT DRUG ADMINISTRATION DURATION [None]
  - LOSS OF CONSCIOUSNESS [None]
  - MALAISE [None]
  - NAUSEA [None]
  - VOMITING [None]
